FAERS Safety Report 16938746 (Version 1)
Quarter: 2019Q4

REPORT INFORMATION
  Report Type: Spontaneous
  Country: US (occurrence: US)
  Receive Date: 20191020
  Receipt Date: 20191020
  Transmission Date: 20200122
  Serious: No
  Sender: FDA-Public Use
  Company Number: US-SHIRE-US201934789

PATIENT
  Sex: Female

DRUGS (2)
  1. VYVANSE [Suspect]
     Active Substance: LISDEXAMFETAMINE DIMESYLATE
     Dosage: 40 MILLIGRAM, UNKNOWN
     Route: 065
     Dates: start: 2019
  2. VYVANSE [Suspect]
     Active Substance: LISDEXAMFETAMINE DIMESYLATE
     Indication: ATTENTION DEFICIT/HYPERACTIVITY DISORDER
     Dosage: 50 MILLIGRAM, UNKNOWN
     Route: 065
     Dates: end: 2019

REACTIONS (3)
  - Exposure during pregnancy [Not Recovered/Not Resolved]
  - Product physical issue [Unknown]
  - Drug ineffective [Recovered/Resolved]

NARRATIVE: CASE EVENT DATE: 2019
